FAERS Safety Report 19030797 (Version 1)
Quarter: 2021Q1

REPORT INFORMATION
  Report Type: Report from Study
  Country: BE (occurrence: BE)
  Receive Date: 20210319
  Receipt Date: 20210319
  Transmission Date: 20210420
  Serious: Yes (Hospitalization, Other)
  Sender: FDA-Public Use
  Company Number: NVSC2020BE214051

PATIENT
  Age: 34 Year
  Sex: Male
  Weight: 90 kg

DRUGS (3)
  1. VOTUBIA [Suspect]
     Active Substance: EVEROLIMUS
     Indication: TUBEROUS SCLEROSIS COMPLEX
     Dosage: 10 MG
     Route: 048
     Dates: start: 20161207
  2. TOTALIP [Concomitant]
     Active Substance: ATORVASTATIN
     Indication: PRODUCT USED FOR UNKNOWN INDICATION
     Dosage: 40 MG
     Route: 048
  3. BRIVIACT [Concomitant]
     Active Substance: BRIVARACETAM
     Indication: PRODUCT USED FOR UNKNOWN INDICATION
     Dosage: 50 MG
     Route: 048

REACTIONS (2)
  - Renal haemorrhage [Not Recovered/Not Resolved]
  - Angiomyolipoma [Unknown]

NARRATIVE: CASE EVENT DATE: 20191201
